FAERS Safety Report 4658877-0 (Version None)
Quarter: 2005Q2

REPORT INFORMATION
  Report Type: 
  Country: None (occurrence: None)
  Receive Date: 20050511
  Receipt Date: 20050509
  Transmission Date: 20051028
  Serious: Yes (Other)
  Sender: FDA-Public Use
  Company Number: PHEH2005US05277

PATIENT
  Age: 70 Year
  Sex: Female

DRUGS (3)
  1. PROTOPIC [Concomitant]
     Indication: ECZEMA
     Route: 061
     Dates: start: 20041201, end: 20041201
  2. TRIAMCINOLONE [Concomitant]
     Indication: ECZEMA
     Dates: start: 20030101
  3. ELIDEL [Suspect]
     Indication: ECZEMA
     Dosage: UNK, BID
     Route: 061
     Dates: start: 20030101

REACTIONS (3)
  - BASAL CELL CARCINOMA [None]
  - DRUG INEFFECTIVE [None]
  - SKIN NEOPLASM EXCISION [None]
